FAERS Safety Report 5007261-9 (Version None)
Quarter: 2006Q2

REPORT INFORMATION
  Report Type: 
  Country: None (occurrence: None)
  Receive Date: 20060518
  Receipt Date: 20060518
  Transmission Date: 20061013
  Serious: Yes (Death)
  Sender: FDA-Public Use
  Company Number: None

PATIENT
  Age: 60 Year
  Sex: Female
  Weight: 76.2043 kg

DRUGS (2)
  1. OMNIPAQUE 300 [Suspect]
     Indication: COMPUTERISED TOMOGRAM
     Dosage: 147 ML ONE TIME PO
     Route: 048
     Dates: start: 20050708, end: 20050708
  2. OMNIPAQUE 300 [Suspect]
     Indication: COMPUTERISED TOMOGRAM ABDOMEN
     Dosage: 147 ML ONE TIME PO
     Route: 048
     Dates: start: 20050708, end: 20050708

REACTIONS (5)
  - CARDIO-RESPIRATORY ARREST [None]
  - COUGH [None]
  - ERYTHEMA [None]
  - HEART RATE INCREASED [None]
  - OXYGEN SATURATION DECREASED [None]
